FAERS Safety Report 9192401 (Version 2)
Quarter: 2013Q2

REPORT INFORMATION
  Report Type: Report from Study
  Country: US (occurrence: US)
  Receive Date: 20130327
  Receipt Date: 20130415
  Transmission Date: 20140414
  Serious: Yes (Other)
  Sender: FDA-Public Use
  Company Number: US-JNJFOC-20130312112

PATIENT
  Sex: Female

DRUGS (1)
  1. REMICADE [Suspect]
     Indication: RHEUMATOID ARTHRITIS
     Dosage: AROUND 2007
     Route: 042
     Dates: start: 2007, end: 20130104

REACTIONS (2)
  - Neoplasm malignant [Recovering/Resolving]
  - Cardiac disorder [Unknown]
